FAERS Safety Report 4269053-8 (Version None)
Quarter: 2004Q1

REPORT INFORMATION
  Report Type: 
  Country: None (occurrence: None)
  Receive Date: 20040112
  Receipt Date: 20040112
  Transmission Date: 20041129
  Serious: No
  Sender: FDA-Public Use
  Company Number: None

PATIENT
  Sex: Female

DRUGS (2)
  1. HUMALOG [Suspect]
  2. HUMALOG [Suspect]

REACTIONS (1)
  - MEDICATION ERROR [None]
